FAERS Safety Report 7194904-7 (Version None)
Quarter: 2010Q4

REPORT INFORMATION
  Report Type: 
  Country: None (occurrence: None)
  Receive Date: 20101223
  Receipt Date: 20100920
  Transmission Date: 20110411
  Serious: No
  Sender: FDA-Public Use
  Company Number: US-AMGEN-KDL439408

PATIENT

DRUGS (13)
  1. ENBREL [Suspect]
     Indication: PRODUCT USED FOR UNKNOWN INDICATION
     Dosage: 50 MG, QWK
     Route: 058
  2. CELECOXIB [Concomitant]
     Dosage: 100 MG, UNK
  3. PREDNISONE [Concomitant]
     Dosage: 5 MG, UNK
  4. ACETAMINOPHEN AND HYDROCODONE BITARTRATE [Concomitant]
     Dosage: UNK UNK, UNK
  5. VALSARTAN [Concomitant]
     Dosage: 40 MG, UNK
  6. POTASSIUM CHLORIDE [Concomitant]
     Dosage: 10 MEQ, UNK
  7. METAXALONE [Concomitant]
     Dosage: 800 MG, UNK
  8. SULFASALAZINE [Concomitant]
     Dosage: 500 MG, UNK
  9. IRON AND VITAMIN C [Concomitant]
     Dosage: UNK UNK, UNK
  10. VITAMIN B COMPLEX [Concomitant]
     Dosage: UNK UNK, UNK
  11. TRIAMTERENE AND HYDROCHLOROTHIAZIDE [Concomitant]
     Dosage: UNK UNK, UNK
  12. CHONDROITIN [Concomitant]
     Dosage: UNK UNK, UNK
  13. ERGOCALCIFEROL [Concomitant]
     Dosage: UNK UNK, UNK

REACTIONS (1)
  - UPPER RESPIRATORY TRACT INFECTION [None]
